FAERS Safety Report 17672778 (Version 1)
Quarter: 2020Q2

REPORT INFORMATION
  Report Type: Report from Study
  Country: None (occurrence: US)
  Receive Date: 20200416
  Receipt Date: 20200416
  Transmission Date: 20200713
  Serious: Yes (Hospitalization, Other)
  Sender: FDA-Public Use
  Company Number: US-ABBVIE-19K-163-3205967-00

PATIENT
  Sex: Female

DRUGS (2)
  1. HUMIRA [Suspect]
     Active Substance: ADALIMUMAB
     Indication: PSORIASIS
     Route: 058
     Dates: start: 2014, end: 2016
  2. HUMIRA [Suspect]
     Active Substance: ADALIMUMAB
     Indication: PSORIATIC ARTHROPATHY
     Route: 058
     Dates: start: 201912, end: 202004

REACTIONS (6)
  - Drug ineffective [Unknown]
  - Pneumonia [Unknown]
  - Immunodeficiency [Unknown]
  - Sepsis [Recovered/Resolved]
  - Kidney infection [Unknown]
  - Ear infection [Unknown]

NARRATIVE: CASE EVENT DATE: 2016
